FAERS Safety Report 9285567 (Version 1)
Quarter: 2013Q2

REPORT INFORMATION
  Report Type: Report from Study
  Country: US (occurrence: US)
  Receive Date: 20130513
  Receipt Date: 20130513
  Transmission Date: 20140414
  Serious: Yes (Other)
  Sender: FDA-Public Use
  Company Number: PHEH2013US010216

PATIENT
  Age: 50 Year
  Sex: Female
  Weight: 47.17 kg

DRUGS (3)
  1. GILENYA [Suspect]
     Indication: MULTIPLE SCLEROSIS
     Dosage: 0.5 MG, QD
     Route: 048
     Dates: start: 20120208
  2. TRAMADOL [Concomitant]
  3. DEPAKOTE [Concomitant]
     Dosage: 250 MG, TID

REACTIONS (2)
  - Petit mal epilepsy [Not Recovered/Not Resolved]
  - Visual impairment [Not Recovered/Not Resolved]
